FAERS Safety Report 18320779 (Version 3)
Quarter: 2020Q4

REPORT INFORMATION
  Report Type: Report from Study
  Country: US (occurrence: US)
  Receive Date: 20200929
  Receipt Date: 20201207
  Transmission Date: 20210113
  Serious: Yes (Hospitalization, Other)
  Sender: FDA-Public Use
  Company Number: US-SHIRE-US202028996

PATIENT
  Age: 9 Month
  Sex: Male
  Weight: 10.78 kg

DRUGS (3)
  1. IDURSULFASE [Suspect]
     Active Substance: IDURSULFASE
     Indication: MUCOPOLYSACCHARIDOSIS II
     Dosage: 6 MILLIGRAM, 1X/WEEK
     Route: 042
     Dates: start: 20200709
  2. IDURSULFASE [Suspect]
     Active Substance: IDURSULFASE
     Dosage: 6 MILLIGRAM, 1/WEEK
     Route: 042
     Dates: start: 20200716
  3. LASIX [Concomitant]
     Active Substance: FUROSEMIDE
     Indication: MITRAL VALVE INCOMPETENCE

REACTIONS (9)
  - Loss of consciousness [Not Recovered/Not Resolved]
  - Inappropriate schedule of product administration [Unknown]
  - Infusion related reaction [Not Recovered/Not Resolved]
  - Drug specific antibody absent [Unknown]
  - Vomiting [Recovered/Resolved]
  - Product dose omission issue [Unknown]
  - Malaise [Recovered/Resolved]
  - Drug specific antibody present [Unknown]
  - Tachycardia [Recovered/Resolved]

NARRATIVE: CASE EVENT DATE: 20200827
